FAERS Safety Report 10630847 (Version 1)
Quarter: 2014Q4

REPORT INFORMATION
  Report Type: Spontaneous
  Country: US (occurrence: US)
  Receive Date: 20141205
  Receipt Date: 20141205
  Transmission Date: 20150529
  Serious: No
  Sender: FDA-Public Use
  Company Number: US-BRISTOL-MYERS SQUIBB COMPANY-21536636

PATIENT
  Age: 40 Year
  Sex: Female

DRUGS (1)
  1. FARXIGA [Suspect]
     Active Substance: DAPAGLIFLOZIN PROPANEDIOL
     Indication: TYPE 2 DIABETES MELLITUS
     Dosage: THERAPY START: ABOUT 4 MONTHS AGO.?THERAPY STOP: ABOUT 1 MONTHS AGO
     Dates: start: 2014, end: 2014

REACTIONS (2)
  - Low density lipoprotein increased [Unknown]
  - Blood triglycerides increased [Unknown]
